FAERS Safety Report 4583798-1 (Version None)
Quarter: 2005Q1

REPORT INFORMATION
  Report Type: 
  Country: None (occurrence: None)
  Receive Date: 20050216
  Receipt Date: 20050117
  Transmission Date: 20050727
  Serious: No
  Sender: FDA-Public Use
  Company Number: US-GLAXOSMITHKLINE-A0540950A

PATIENT
  Age: 62 Year
  Sex: Female

DRUGS (5)
  1. LOTRONEX [Suspect]
     Indication: IRRITABLE BOWEL SYNDROME
     Dosage: 1MG TWICE PER DAY
     Route: 048
     Dates: start: 20041001
  2. LIBRAX [Concomitant]
  3. EVISTA [Concomitant]
  4. PAMELOR [Concomitant]
  5. PROTONIX [Concomitant]

REACTIONS (1)
  - DRUG INEFFECTIVE [None]
